FAERS Safety Report 4361190-2 (Version None)
Quarter: 2004Q2

REPORT INFORMATION
  Report Type: 
  Country: None (occurrence: None)
  Receive Date: 20040510
  Receipt Date: 20030701
  Transmission Date: 20050107
  Serious: Yes (Hospitalization)
  Sender: FDA-Public Use
  Company Number: TAP2003Q01582

PATIENT
  Age: 31 Year
  Sex: Female
  Weight: 66.2252 kg

DRUGS (1)
  1. LUPRON DEPOT-3 [Suspect]
     Indication: ENDOMETRIOSIS
     Dosage: 11.25 MG, ONCE, INTRAMUSCULAR
     Route: 030
     Dates: start: 20030320, end: 20030320

REACTIONS (13)
  - ARTHRALGIA [None]
  - BREAST PAIN [None]
  - BURNING SENSATION [None]
  - DIZZINESS [None]
  - HEADACHE [None]
  - HYPERTENSION [None]
  - INSOMNIA [None]
  - NAUSEA [None]
  - NECK PAIN [None]
  - PALPITATIONS [None]
  - PANIC ATTACK [None]
  - TACHYCARDIA [None]
  - VISION BLURRED [None]
